FAERS Safety Report 7426415-5 (Version None)
Quarter: 2011Q2

REPORT INFORMATION
  Report Type: 
  Country: None (occurrence: None)
  Receive Date: 20110420
  Receipt Date: 20110412
  Transmission Date: 20111010
  Serious: Yes (Other)
  Sender: FDA-Public Use
  Company Number: DE-PFIZER INC-2011084162

PATIENT
  Age: 34 Year
  Sex: Male

DRUGS (3)
  1. PREGABALIN [Suspect]
     Dosage: 150 MG, 1X/DAY
     Dates: start: 20100101, end: 20100101
  2. PREGABALIN [Suspect]
     Dosage: UNK
     Dates: start: 20100101, end: 20100101
  3. PREGABALIN [Suspect]
     Indication: SCIATICA
     Dosage: 300 MG, 1X/DAY
     Dates: start: 20100101, end: 20100101

REACTIONS (4)
  - SEDATION [None]
  - DRUG DEPENDENCE [None]
  - WITHDRAWAL SYNDROME [None]
  - INTENTIONAL DRUG MISUSE [None]
